FAERS Safety Report 13269502 (Version 2)
Quarter: 2017Q1

REPORT INFORMATION
  Report Type: Spontaneous
  Country: JP (occurrence: JP)
  Receive Date: 20170224
  Receipt Date: 20170323
  Transmission Date: 20170428
  Serious: Yes (Life-Threatening, Hospitalization, Other)
  Sender: FDA-Public Use
  Company Number: JP-REGENERON PHARMACEUTICALS, INC.-2017-12304

PATIENT

DRUGS (5)
  1. APIXABAN [Suspect]
     Active Substance: APIXABAN
     Indication: ANTICOAGULANT THERAPY
     Dosage: 1 DF, BID
     Route: 048
     Dates: start: 201502
  2. CRAVIT [Concomitant]
     Active Substance: LEVOFLOXACIN
     Dosage: UNK UNK, QID
     Route: 047
     Dates: start: 20170123, end: 20170201
  3. EYLEA [Suspect]
     Active Substance: AFLIBERCEPT
     Indication: OCULAR ISCHAEMIC SYNDROME
  4. APIXABAN [Suspect]
     Active Substance: APIXABAN
     Indication: ATRIAL FIBRILLATION
  5. EYLEA [Suspect]
     Active Substance: AFLIBERCEPT
     Indication: RETINAL VEIN OCCLUSION
     Dosage: 2 MG, ONCE
     Route: 031
     Dates: start: 20170126, end: 20170126

REACTIONS (1)
  - Aortic dissection [Unknown]

NARRATIVE: CASE EVENT DATE: 20170214
